FAERS Safety Report 9700238 (Version 2)
Quarter: 2014Q1

REPORT INFORMATION
  Report Type: Spontaneous
  Country: IT (occurrence: None)
  Receive Date: 20131119
  Receipt Date: 20140106
  Transmission Date: 20141002
  Serious: Yes (Hospitalization)
  Sender: FDA-Public Use
  Company Number: AUR-APL-2013-09359

PATIENT
  Age: 55 Year
  Sex: Female

DRUGS (2)
  1. SERTRALINE [Suspect]
     Indication: PRODUCT USED FOR UNKNOWN INDICATION
     Route: 048
     Dates: start: 20130527, end: 20130527
  2. BROMAZEPAM [Suspect]
     Indication: PRODUCT USED FOR UNKNOWN INDICATION
     Route: 048
     Dates: start: 20130527, end: 20130527

REACTIONS (5)
  - Intentional self-injury [None]
  - Overdose [None]
  - Sopor [None]
  - Drug abuse [None]
  - Oxygen saturation decreased [None]
